FAERS Safety Report 17056318 (Version 2)
Quarter: 2019Q4

REPORT INFORMATION
  Report Type: Spontaneous
  Country: JP (occurrence: JP)
  Receive Date: 20191121
  Receipt Date: 20191212
  Transmission Date: 20200122
  Serious: Yes (Hospitalization)
  Sender: FDA-Public Use
  Company Number: JP-ROCHE-2476218

PATIENT
  Age: 81 Year
  Sex: Male
  Weight: 53 kg

DRUGS (8)
  1. RESTAMIN [DIPHENHYDRAMINE] [Concomitant]
     Route: 048
     Dates: start: 20190830, end: 20190830
  2. DECADRON [Concomitant]
     Active Substance: DEXAMETHASONE
     Route: 041
     Dates: start: 20190830, end: 20190830
  3. XELODA [Suspect]
     Active Substance: CAPECITABINE
     Indication: COLON CANCER
     Route: 048
     Dates: start: 20190830, end: 20190910
  4. GASTER [FAMOTIDINE] [Concomitant]
     Route: 041
     Dates: start: 20190830, end: 20190830
  5. ELPLAT [Suspect]
     Active Substance: OXALIPLATIN
     Indication: COLON CANCER
     Route: 042
     Dates: start: 20190830, end: 20190910
  6. DECADRON [Concomitant]
     Active Substance: DEXAMETHASONE
     Dosage: DOSE INTERVAL UNCERTAINTY
     Route: 048
     Dates: start: 20190831, end: 20190902
  7. PYDOXAL [Concomitant]
     Active Substance: PYRIDOXAL
     Dosage: DOSE INTERVAL UNCERTAINTY
     Route: 048
     Dates: start: 20190830, end: 20190910
  8. ALOXI [Concomitant]
     Active Substance: PALONOSETRON HYDROCHLORIDE

REACTIONS (3)
  - Ileus [Recovering/Resolving]
  - Anastomotic stenosis [Recovering/Resolving]
  - Anastomotic ulcer [Recovering/Resolving]

NARRATIVE: CASE EVENT DATE: 20190910
